FAERS Safety Report 5418580-6 (Version None)
Quarter: 2007Q3

REPORT INFORMATION
  Report Type: 
  Country: None (occurrence: None)
  Receive Date: 20070817
  Receipt Date: 20070808
  Transmission Date: 20080115
  Serious: Yes (Other)
  Sender: FDA-Public Use
  Company Number: BR-SHR-BR-2007-029711

PATIENT
  Age: 45 Year
  Sex: Female

DRUGS (2)
  1. MIRENA [Suspect]
     Dosage: 20 A?G/DAY, CONT
     Route: 015
     Dates: start: 20020905, end: 20030901
  2. PURAN T4 [Concomitant]
     Dosage: 1 TAB(S), 1X/DAY
     Route: 048

REACTIONS (4)
  - BREAST CYST [None]
  - BREAST MASS [None]
  - MENSTRUATION IRREGULAR [None]
  - PAPILLARY THYROID CANCER [None]
